FAERS Safety Report 21132397 (Version 2)
Quarter: 2025Q2

REPORT INFORMATION
  Report Type: Spontaneous
  Country: FR (occurrence: FR)
  Receive Date: 20220726
  Receipt Date: 20250514
  Transmission Date: 20250716
  Serious: Yes (Hospitalization, Other)
  Sender: PFIZER
  Company Number: None

PATIENT
  Age: 83 Year
  Sex: Female
  Weight: 63 kg

DRUGS (3)
  1. LINEZOLID [Suspect]
     Active Substance: LINEZOLID
     Indication: Septic shock
     Dosage: 600 MG, 2X/DAY (600 MG /12 HOURS)
     Route: 042
     Dates: start: 20220615, end: 20220619
  2. CEFEPIME HYDROCHLORIDE [Suspect]
     Active Substance: CEFEPIME HYDROCHLORIDE
     Indication: Septic shock
     Dosage: 2 G, 2X/DAY (2G/12 HOURS)
     Route: 042
     Dates: start: 20220615, end: 20220619
  3. AMIKACIN [Concomitant]
     Active Substance: AMIKACIN
     Indication: Septic shock
     Route: 042
     Dates: start: 20220615, end: 20220615

REACTIONS (1)
  - Status epilepticus [Recovered/Resolved]

NARRATIVE: CASE EVENT DATE: 20220619
